FAERS Safety Report 6520787-1 (Version None)
Quarter: 2009Q4

REPORT INFORMATION
  Report Type: 
  Country: None (occurrence: None)
  Receive Date: 20091229
  Receipt Date: 20091221
  Transmission Date: 20100525
  Serious: Yes (Other)
  Sender: FDA-Public Use
  Company Number: US-TEVA-218682USA

PATIENT
  Age: 78 Year
  Sex: Female

DRUGS (1)
  1. METHOTREXATE [Suspect]
     Indication: RHEUMATOID ARTHRITIS

REACTIONS (6)
  - CENTRAL NERVOUS SYSTEM LYMPHOMA [None]
  - CENTRAL NERVOUS SYSTEM NEOPLASM [None]
  - CEREBRAL TOXOPLASMOSIS [None]
  - EPSTEIN-BARR VIRUS ASSOCIATED LYMPHOPROLIFERATIVE DISORDER [None]
  - METASTATIC MALIGNANT MELANOMA [None]
  - MULTI-ORGAN FAILURE [None]
